FAERS Safety Report 18755407 (Version 43)
Quarter: 2022Q4

REPORT INFORMATION
  Report Type: Report from Study
  Country: US (occurrence: US)
  Receive Date: 20210119
  Receipt Date: 20221230
  Transmission Date: 20230113
  Serious: Yes (Other)
  Sender: FDA-Public Use
  Company Number: US-TAKEDA-2021TUS001616

PATIENT
  Age: 50 Year
  Sex: Female
  Weight: 78 kg

DRUGS (41)
  1. HUMAN IMMUNOGLOBULIN G [Suspect]
     Active Substance: HUMAN IMMUNOGLOBULIN G
     Indication: Primary immunodeficiency syndrome
     Dosage: 35 GRAM, Q4WEEKS
     Route: 042
     Dates: start: 20210107
  2. HUMAN IMMUNOGLOBULIN G [Suspect]
     Active Substance: HUMAN IMMUNOGLOBULIN G
     Indication: Congenital hypogammaglobulinaemia
     Dosage: 25 GRAM, Q2WEEKS
     Route: 042
     Dates: start: 20210107
  3. HUMAN IMMUNOGLOBULIN G [Suspect]
     Active Substance: HUMAN IMMUNOGLOBULIN G
     Indication: Selective IgG subclass deficiency
     Dosage: 30 GRAM, Q4WEEKS
     Route: 042
     Dates: start: 20210107
  4. HUMAN IMMUNOGLOBULIN G [Suspect]
     Active Substance: HUMAN IMMUNOGLOBULIN G
     Dosage: 30 GRAM, Q2WEEKS
     Route: 042
     Dates: start: 20210107
  5. HUMAN IMMUNOGLOBULIN G [Suspect]
     Active Substance: HUMAN IMMUNOGLOBULIN G
     Dosage: 30 GRAM, Q2WEEKS
     Route: 042
     Dates: start: 20220301
  6. HUMAN IMMUNOGLOBULIN G [Suspect]
     Active Substance: HUMAN IMMUNOGLOBULIN G
     Dosage: 25 GRAM, Q2WEEKS
     Route: 042
     Dates: start: 20220406
  7. HUMAN IMMUNOGLOBULIN G [Suspect]
     Active Substance: HUMAN IMMUNOGLOBULIN G
     Dosage: 30 GRAM, Q2WEEKS
     Route: 042
     Dates: start: 20220406
  8. CUVITRU [Suspect]
     Active Substance: HUMAN IMMUNOGLOBULIN G
     Indication: Congenital hypogammaglobulinaemia
     Dosage: 6 GRAM, 3/WEEK
     Route: 058
     Dates: start: 20210206
  9. CUVITRU [Suspect]
     Active Substance: HUMAN IMMUNOGLOBULIN G
     Indication: Selective IgG subclass deficiency
     Dosage: 8 GRAM, 1/WEEK
     Route: 058
     Dates: start: 20210206
  10. CUVITRU [Suspect]
     Active Substance: HUMAN IMMUNOGLOBULIN G
     Dosage: 8 GRAM, 2/WEEK
     Route: 058
     Dates: start: 20210206
  11. CUVITRU [Suspect]
     Active Substance: HUMAN IMMUNOGLOBULIN G
     Dosage: 10 GRAM, 1/WEEK
     Route: 058
     Dates: start: 20210206
  12. CUVITRU [Suspect]
     Active Substance: HUMAN IMMUNOGLOBULIN G
     Dosage: 12 GRAM, 1/WEEK
     Route: 058
     Dates: start: 20210206
  13. CUVITRU [Suspect]
     Active Substance: HUMAN IMMUNOGLOBULIN G
     Dosage: 18 GRAM, 1/WEEK
     Route: 058
     Dates: start: 20210206
  14. CUVITRU [Suspect]
     Active Substance: HUMAN IMMUNOGLOBULIN G
     Dosage: 18 GRAM, 2/WEEK
     Route: 058
     Dates: start: 20210206
  15. CUVITRU [Suspect]
     Active Substance: HUMAN IMMUNOGLOBULIN G
     Dosage: 12 GRAM
     Route: 058
     Dates: start: 20210323
  16. ACETAMINOPHEN [Concomitant]
     Active Substance: ACETAMINOPHEN
     Dosage: UNK
     Route: 065
  17. DIPHENHYDRAMINE [Concomitant]
     Active Substance: DIPHENHYDRAMINE
     Dosage: UNK
     Route: 065
  18. LIDOCAINE [Concomitant]
     Active Substance: LIDOCAINE
     Dosage: UNK
     Route: 065
  19. SODIUM CHLORIDE [Concomitant]
     Active Substance: SODIUM CHLORIDE
     Dosage: UNK
     Route: 065
  20. EPINEPHRINE [Concomitant]
     Active Substance: EPINEPHRINE
     Dosage: UNK
     Route: 065
  21. AZITHROMYCIN [Concomitant]
     Active Substance: AZITHROMYCIN
     Dosage: UNK
     Route: 065
  22. DOXYCYCLINE [Concomitant]
     Active Substance: DOXYCYCLINE
  23. MAGNESIUM [Concomitant]
     Active Substance: MAGNESIUM
     Dosage: UNK
     Route: 065
  24. SINGULAIR [Concomitant]
     Active Substance: MONTELUKAST SODIUM
     Dosage: UNK
     Route: 065
  25. ZINC [Concomitant]
     Active Substance: ZINC
     Dosage: UNK
     Route: 065
  26. FERROCITE [Concomitant]
     Active Substance: FERROUS FUMARATE
     Dosage: UNK
     Route: 065
  27. MUCINEX D [Concomitant]
     Active Substance: GUAIFENESIN\PSEUDOEPHEDRINE HYDROCHLORIDE
     Dosage: UNK
     Route: 065
  28. MONUROL [Concomitant]
     Active Substance: FOSFOMYCIN TROMETHAMINE
     Dosage: UNK
     Route: 065
  29. VYVANSE [Concomitant]
     Active Substance: LISDEXAMFETAMINE DIMESYLATE
  30. CLARITHROMYCIN [Concomitant]
     Active Substance: CLARITHROMYCIN
  31. DOXEPIN HCL [Concomitant]
     Active Substance: DOXEPIN HYDROCHLORIDE
  32. PREDNISONE [Concomitant]
     Active Substance: PREDNISONE
     Dosage: UNK
     Route: 065
  33. CLARITIN [Concomitant]
     Active Substance: LORATADINE
  34. ALBUTEROL SULFATE [Concomitant]
     Active Substance: ALBUTEROL SULFATE
  35. METHOTREXATE [Concomitant]
     Active Substance: METHOTREXATE
  36. DOXYCYCLINE HYCLATE [Concomitant]
     Active Substance: DOXYCYCLINE HYCLATE
     Indication: Product used for unknown indication
     Dosage: UNK
     Route: 065
  37. ESCITALOPRAM [Concomitant]
     Active Substance: ESCITALOPRAM OXALATE
     Dosage: UNK
     Route: 065
  38. FERROUS FUMARATE [Concomitant]
     Active Substance: FERROUS FUMARATE
     Dosage: UNK
     Route: 065
  39. HEPARIN [Concomitant]
     Active Substance: HEPARIN SODIUM
     Dosage: UNK
     Route: 065
  40. LIDOCAINE [Concomitant]
     Active Substance: LIDOCAINE
     Dosage: UNK
     Route: 065
  41. MELATONIN [Concomitant]
     Active Substance: MELATONIN

REACTIONS (86)
  - Granulomatosis with polyangiitis [Unknown]
  - Foreign body in throat [Unknown]
  - Lower respiratory tract infection [Unknown]
  - Pneumonia [Unknown]
  - Brain oedema [Unknown]
  - Erythema [Not Recovered/Not Resolved]
  - Swelling [Not Recovered/Not Resolved]
  - Poor venous access [Unknown]
  - Infusion site bruising [Unknown]
  - Cardiomegaly [Unknown]
  - Ocular discomfort [Unknown]
  - Periorbital swelling [Unknown]
  - Eye discharge [Unknown]
  - Infection [Unknown]
  - Weight increased [Unknown]
  - Emotional distress [Unknown]
  - Peripheral swelling [Unknown]
  - Cystitis [Not Recovered/Not Resolved]
  - Disorientation [Unknown]
  - Productive cough [Unknown]
  - Urinary tract infection [Unknown]
  - Stress [Unknown]
  - Seasonal allergy [Unknown]
  - Skin discolouration [Unknown]
  - Renal disorder [Unknown]
  - Abdominal distension [Unknown]
  - Menopause [Unknown]
  - Infusion site irritation [Unknown]
  - Sinus disorder [Unknown]
  - Infusion site inflammation [Unknown]
  - Inflammation [Unknown]
  - Illness [Unknown]
  - Hypersomnia [Unknown]
  - Fibrin D dimer increased [Unknown]
  - Uterine leiomyoma [Unknown]
  - Therapeutic response shortened [Unknown]
  - Sinusitis [Unknown]
  - Palpitations [Unknown]
  - Agitation [Unknown]
  - Infusion site discolouration [Unknown]
  - Hypoaesthesia [Unknown]
  - Infusion site haemorrhage [Unknown]
  - Somnolence [Unknown]
  - Asthenia [Unknown]
  - Infusion site erythema [Unknown]
  - Infusion site extravasation [Unknown]
  - Paraesthesia [Unknown]
  - Local reaction [Unknown]
  - Influenza like illness [Unknown]
  - Anxiety [Unknown]
  - Malaise [Unknown]
  - Dyspnoea [Unknown]
  - Pain in extremity [Unknown]
  - Back pain [Unknown]
  - Chest pain [Unknown]
  - Infusion site swelling [Unknown]
  - Infusion site pain [Unknown]
  - Pyrexia [Unknown]
  - Dizziness [Unknown]
  - Headache [Unknown]
  - Fatigue [Unknown]
  - Visual impairment [Unknown]
  - Contusion [Unknown]
  - Urticaria [Unknown]
  - Discharge [Unknown]
  - Feeling hot [Unknown]
  - Infusion site pain [Unknown]
  - Weight decreased [Unknown]
  - Oropharyngeal pain [Unknown]
  - Nasopharyngitis [Unknown]
  - Bronchitis [Unknown]
  - Pharyngitis [Unknown]
  - Feeling abnormal [Unknown]
  - Infusion site laceration [Unknown]
  - Device breakage [Unknown]
  - Device lead issue [Unknown]
  - Product administration error [Unknown]
  - Incorrect dose administered [Unknown]
  - Product contamination physical [Unknown]
  - Incorrect drug administration rate [Unknown]
  - Product temperature excursion issue [Unknown]
  - Incorrect product administration duration [Unknown]
  - COVID-19 [Unknown]
  - Sleep disorder [Unknown]
  - Depression [Unknown]
  - Lung disorder [Unknown]

NARRATIVE: CASE EVENT DATE: 20210215
